FAERS Safety Report 7339016-4 (Version None)
Quarter: 2011Q1

REPORT INFORMATION
  Report Type: 
  Country: None (occurrence: None)
  Receive Date: 20110308
  Receipt Date: 20110304
  Transmission Date: 20110831
  Serious: Yes (Other)
  Sender: FDA-Public Use
  Company Number: US-AMGEN-USASP2011012690

PATIENT
  Sex: Male

DRUGS (5)
  1. AZATHIOPRINE [Concomitant]
     Dosage: UNK
     Dates: start: 20100214
  2. IMMUNOGLOBULINS [Concomitant]
     Dosage: UNK
     Dates: start: 20100217
  3. CORTICOSTEROIDS [Concomitant]
     Dosage: UNK
     Dates: start: 20090901
  4. NPLATE [Suspect]
     Indication: IDIOPATHIC THROMBOCYTOPENIC PURPURA
     Dates: start: 20100518
  5. PROMACTA [Concomitant]
     Dosage: UNK
     Dates: start: 20100309

REACTIONS (2)
  - EMBOLISM ARTERIAL [None]
  - THROMBOSIS [None]
